FAERS Safety Report 5159897-2 (Version None)
Quarter: 2006Q4

REPORT INFORMATION
  Report Type: 
  Country: None (occurrence: None)
  Receive Date: 20061129
  Receipt Date: 20060419
  Transmission Date: 20070319
  Serious: No
  Sender: FDA-Public Use
  Company Number: US-GLAXOSMITHKLINE-A0602477A

PATIENT
  Age: 86 Year
  Sex: Female

DRUGS (4)
  1. WELLBUTRIN SR [Suspect]
     Indication: DEPRESSION
     Dosage: 150MG PER DAY
     Route: 048
     Dates: start: 20051208, end: 20060125
  2. BUPROPION HCL [Suspect]
     Dosage: 100MG PER DAY
     Route: 048
     Dates: start: 20060126, end: 20060329
  3. XANAX [Concomitant]
  4. PREMARIN [Concomitant]

REACTIONS (5)
  - ANOREXIA [None]
  - DRUG INEFFECTIVE [None]
  - MALAISE [None]
  - NERVOUSNESS [None]
  - WRONG TECHNIQUE IN DRUG USAGE PROCESS [None]
